FAERS Safety Report 15159235 (Version 1)
Quarter: 2018Q3

REPORT INFORMATION
  Report Type: Report from Study
  Country: ES (occurrence: ES)
  Receive Date: 20180718
  Receipt Date: 20180718
  Transmission Date: 20181010
  Serious: Yes (Life-Threatening, Hospitalization, Other)
  Sender: FDA-Public Use
  Company Number: ES-MYLANLABS-2018M1051904

PATIENT
  Age: 35 Year
  Sex: Female

DRUGS (6)
  1. PAROXETINA /00830802/ [Interacting]
     Active Substance: PAROXETINE HYDROCHLORIDE
     Indication: PRODUCT USED FOR UNKNOWN INDICATION
     Dosage: 580 MG, TOTAL
     Route: 048
     Dates: start: 20170306, end: 20170306
  2. CLONAZEPAM. [Interacting]
     Active Substance: CLONAZEPAM
     Indication: PRODUCT USED FOR UNKNOWN INDICATION
     Dosage: 180 MG, TOTAL
     Route: 048
     Dates: start: 20170306, end: 20170306
  3. OLANZAPINE. [Suspect]
     Active Substance: OLANZAPINE
     Indication: PRODUCT USED FOR UNKNOWN INDICATION
     Dosage: 240 MG, TOTAL
     Route: 048
     Dates: start: 20170306, end: 20170306
  4. CLONAZEPAM. [Concomitant]
     Active Substance: CLONAZEPAM
     Indication: PERSONALITY DISORDER
     Dosage: 2 MG, QD
     Route: 048
     Dates: start: 201607, end: 20170305
  5. PAROXETINA                         /00830802/ [Concomitant]
     Indication: PERSONALITY DISORDER
     Dosage: 20 MG, QD
     Route: 048
     Dates: start: 20151113, end: 20160305
  6. OXCARBAZEPINE. [Interacting]
     Active Substance: OXCARBAZEPINE
     Indication: PRODUCT USED FOR UNKNOWN INDICATION
     Dosage: 18 G, TOTAL
     Route: 048
     Dates: start: 20170306, end: 20170306

REACTIONS (3)
  - Coma [Recovered/Resolved]
  - Intentional overdose [Recovered/Resolved]
  - Drug interaction [Unknown]

NARRATIVE: CASE EVENT DATE: 20170306
